FAERS Safety Report 8458750-6 (Version None)
Quarter: 2012Q2

REPORT INFORMATION
  Report Type: 
  Country: None (occurrence: None)
  Receive Date: 20120622
  Receipt Date: 20120612
  Transmission Date: 20120825
  Serious: Yes (Other)
  Sender: FDA-Public Use
  Company Number: JP-VERTEX PHARMACEUTICALS INC.-AE-2012-008903

PATIENT
  Age: 67 Year
  Sex: Male

DRUGS (3)
  1. PEGINTERFERON ALFA-2B [Concomitant]
     Route: 058
     Dates: end: 20120522
  2. TELAVIC (TELAPREVIR) [Suspect]
     Route: 048
     Dates: start: 20120509, end: 20120522
  3. RIBAVIRIN [Concomitant]
     Route: 048
     Dates: end: 20120522

REACTIONS (2)
  - NAUSEA [None]
  - DECREASED APPETITE [None]
